FAERS Safety Report 21840978 (Version 1)
Quarter: 2023Q1

REPORT INFORMATION
  Report Type: Report from Study
  Country: US (occurrence: US)
  Receive Date: 20230110
  Receipt Date: 20230110
  Transmission Date: 20230418
  Serious: Yes (Other)
  Sender: FDA-Public Use
  Company Number: US-ABBVIE-4261973

PATIENT
  Age: 21 Year
  Sex: Male

DRUGS (1)
  1. SKYRIZI [Suspect]
     Active Substance: RISANKIZUMAB-RZAA
     Indication: Psoriasis
     Route: 058
     Dates: start: 20210105

REACTIONS (3)
  - Surgery [Unknown]
  - Contusion [Recovering/Resolving]
  - Road traffic accident [Recovering/Resolving]

NARRATIVE: CASE EVENT DATE: 20221106
